FAERS Safety Report 18846815 (Version 3)
Quarter: 2021Q3

REPORT INFORMATION
  Report Type: Report from Study
  Country: KR (occurrence: KR)
  Receive Date: 20210204
  Receipt Date: 20210702
  Transmission Date: 20211014
  Serious: Yes (Hospitalization)
  Sender: FDA-Public Use
  Company Number: KR-EMD SERONO-E2B_90081850

PATIENT
  Age: 78 Year
  Sex: Female
  Weight: 56 kg

DRUGS (10)
  1. INLYTA [Suspect]
     Active Substance: AXITINIB
     Route: 048
     Dates: start: 20201016, end: 20201210
  2. LANSTON [Concomitant]
     Active Substance: LANSOPRAZOLE
     Indication: PROPHYLAXIS
     Route: 048
     Dates: start: 20200918
  3. GASMOTIN [Concomitant]
     Active Substance: MOSAPRIDE CITRATE
     Indication: PROPHYLAXIS
     Route: 048
     Dates: start: 20191129
  4. NORVASC [Concomitant]
     Active Substance: AMLODIPINE BESYLATE
     Indication: HYPERTENSION
     Route: 048
     Dates: start: 201509
  5. INLYTA [Suspect]
     Active Substance: AXITINIB
     Indication: URETERIC CANCER
     Route: 048
     Dates: start: 20190503
  6. INLYTA [Suspect]
     Active Substance: AXITINIB
     Route: 048
     Dates: start: 20200221
  7. BAVENCIO [Suspect]
     Active Substance: AVELUMAB
     Indication: URETERIC CANCER
     Route: 042
     Dates: start: 20190503, end: 20201125
  8. LOPMIN [Concomitant]
     Indication: DIARRHOEA
     Route: 048
     Dates: start: 20201125
  9. STILNOX [Concomitant]
     Active Substance: ZOLPIDEM TARTRATE
     Indication: INSOMNIA
     Route: 048
     Dates: start: 2011
  10. SYNTHROID [Concomitant]
     Active Substance: LEVOTHYROXINE SODIUM
     Indication: HYPOTHYROIDISM
     Route: 048
     Dates: start: 20200923

REACTIONS (1)
  - Hypoalbuminaemia [Recovered/Resolved]

NARRATIVE: CASE EVENT DATE: 20201211
